FAERS Safety Report 23247130 (Version 2)
Quarter: 2024Q4

REPORT INFORMATION
  Report Type: Report from Study
  Country: CA (occurrence: CA)
  Receive Date: 20231130
  Receipt Date: 20241227
  Transmission Date: 20250115
  Serious: Yes (Other)
  Sender: SANDOZ
  Company Number: CA-002147023-NVSC2022CA173266

PATIENT
  Sex: Female

DRUGS (2)
  1. ERELZI [Suspect]
     Active Substance: ETANERCEPT-SZZS
     Dosage: 50 MG, QW(WEEKLY), PRE-FILLED SYRINGE
     Route: 058
  2. ERELZI [Suspect]
     Active Substance: ETANERCEPT-SZZS
     Indication: Rheumatoid arthritis
     Dosage: 50 MG, QW, PRE-FILLED PEN
     Route: 058
     Dates: start: 20220425

REACTIONS (4)
  - Dyspnoea at rest [Unknown]
  - General physical health deterioration [Unknown]
  - Arthralgia [Unknown]
  - Injection site pain [Recovered/Resolved]
